FAERS Safety Report 25363701 (Version 1)
Quarter: 2025Q2

REPORT INFORMATION
  Report Type: Spontaneous
  Country: US (occurrence: US)
  Receive Date: 20250527
  Receipt Date: 20250527
  Transmission Date: 20250716
  Serious: No
  Sender: MAYNE
  Company Number: US-MAYNE PHARMA-2025MYN000073

PATIENT

DRUGS (2)
  1. DORYX MPC [Suspect]
     Active Substance: DOXYCYCLINE HYCLATE
     Indication: Rheumatoid arthritis
     Route: 065
  2. DORYX MPC [Suspect]
     Active Substance: DOXYCYCLINE HYCLATE
     Indication: Skin irritation
     Dosage: 3 TABLETS, QD
     Route: 065
     Dates: start: 20250202

REACTIONS (6)
  - Feeling jittery [Unknown]
  - Nausea [Unknown]
  - Dizziness [Unknown]
  - Palpitations [Unknown]
  - Drug hypersensitivity [Unknown]
  - Off label use [Unknown]

NARRATIVE: CASE EVENT DATE: 20250202
